FAERS Safety Report 11879382 (Version 2)
Quarter: 2016Q1

REPORT INFORMATION
  Report Type: Spontaneous
  Country: FR (occurrence: FR)
  Receive Date: 20151230
  Receipt Date: 20160108
  Transmission Date: 20160526
  Serious: Yes (Congenital Anomaly, Other)
  Sender: FDA-Public Use
  Company Number: FR-PFIZER INC-2015469081

PATIENT
  Sex: Male

DRUGS (6)
  1. BECOTIDE [Suspect]
     Active Substance: BECLOMETHASONE DIPROPIONATE
     Dosage: UNK
     Route: 064
  2. PROPANOLOL HCL [Suspect]
     Active Substance: PROPRANOLOL HYDROCHLORIDE
     Dosage: 120 MG, 1X/DAY
     Route: 064
  3. ZOLOFT [Suspect]
     Active Substance: SERTRALINE HYDROCHLORIDE
     Dosage: UNK
     Route: 064
  4. IMOVANE [Suspect]
     Active Substance: ZOPICLONE
     Dosage: 1 DF, 1X/DAY
     Route: 064
  5. SKENAN [Suspect]
     Active Substance: MORPHINE SULFATE
     Dosage: 10 MG, 1X/DAY
     Route: 064
  6. VENTOLINE [Suspect]
     Active Substance: ALBUTEROL
     Dosage: UNK
     Route: 064

REACTIONS (4)
  - Congenital central nervous system anomaly [Recovered/Resolved with Sequelae]
  - Cerebral disorder [Not Recovered/Not Resolved]
  - Premature baby [Unknown]
  - Maternal exposure during pregnancy [Not Recovered/Not Resolved]

NARRATIVE: CASE EVENT DATE: 20151106
